FAERS Safety Report 6761316-7 (Version None)
Quarter: 2010Q2

REPORT INFORMATION
  Report Type: 
  Country: None (occurrence: None)
  Receive Date: 20100608
  Receipt Date: 20100526
  Transmission Date: 20101027
  Serious: Yes (Death)
  Sender: FDA-Public Use
  Company Number: PHHY2010US21569

PATIENT
  Sex: Male
  Weight: 57 kg

DRUGS (9)
  1. EXJADE [Suspect]
     Indication: LYMPHATIC SYSTEM NEOPLASM
     Dosage: 500 MG, QD
     Route: 048
     Dates: start: 20090422
  2. EXJADE [Suspect]
     Indication: HAEMATOPOIETIC NEOPLASM
     Dosage: 1000 MG, QD
     Route: 048
     Dates: start: 20090112, end: 20100301
  3. EXJADE [Suspect]
     Indication: IRON OVERLOAD
  4. ANTIARRHYTHMICS [Concomitant]
     Dosage: UNK
  5. ACYCLOVIR [Concomitant]
     Indication: ANTIVIRAL TREATMENT
     Dosage: 500 UNK
     Route: 042
  6. AUGMENTIN '125' [Concomitant]
     Dosage: 875 UNK
     Route: 048
  7. KEPPRA [Concomitant]
     Dosage: 300 UNK
     Route: 048
  8. RAPAMYCIN [Concomitant]
     Dosage: 2 MG
     Route: 048
  9. PROGRAF [Concomitant]
     Dosage: 1 MG

REACTIONS (2)
  - CHRONIC MYELOID LEUKAEMIA [None]
  - COMPLICATIONS OF BONE MARROW TRANSPLANT [None]
